FAERS Safety Report 18401477 (Version 1)
Quarter: 2020Q4

REPORT INFORMATION
  Report Type: Spontaneous
  Country: FR (occurrence: FR)
  Receive Date: 20201020
  Receipt Date: 20201020
  Transmission Date: 20210114
  Serious: No
  Sender: FDA-Public Use
  Company Number: FR-BRISTOL-MYERS SQUIBB COMPANY-BMS-2020-087075

PATIENT
  Sex: Female
  Weight: 60 kg

DRUGS (1)
  1. ORENCIA [Suspect]
     Active Substance: ABATACEPT
     Indication: RENAL DISORDER
     Dosage: 125 MILLIGRAM, QWK
     Route: 058
     Dates: start: 20200408

REACTIONS (2)
  - Device malfunction [Unknown]
  - Intentional product use issue [Unknown]
